FAERS Safety Report 18009729 (Version 2)
Quarter: 2020Q3

REPORT INFORMATION
  Report Type: Spontaneous
  Country: US (occurrence: US)
  Receive Date: 20200710
  Receipt Date: 20200713
  Transmission Date: 20201103
  Serious: Yes (Life-Threatening, Other)
  Sender: FDA-Public Use
  Company Number: US-ASTRAZENECA-2020SE85857

PATIENT
  Sex: Male
  Weight: 108.9 kg

DRUGS (2)
  1. SEROQUEL [Suspect]
     Active Substance: QUETIAPINE FUMARATE
     Indication: BIPOLAR DISORDER
     Route: 048
  2. SEROQUEL [Suspect]
     Active Substance: QUETIAPINE FUMARATE
     Indication: BIPOLAR DISORDER
     Route: 048

REACTIONS (23)
  - Seizure [Unknown]
  - Feeding disorder [Unknown]
  - Body height decreased [Unknown]
  - Multiple fractures [Unknown]
  - Headache [Unknown]
  - Vomiting [Unknown]
  - Spinal cord disorder [Unknown]
  - Pain [Unknown]
  - Poor quality sleep [Unknown]
  - Brain neoplasm [Unknown]
  - Gait inability [Unknown]
  - Cerebral disorder [Unknown]
  - Blood testosterone abnormal [Unknown]
  - Dizziness [Unknown]
  - Psychotic disorder [Unknown]
  - Nausea [Unknown]
  - Dyspnoea [Unknown]
  - Coma [Recovered/Resolved]
  - Visual impairment [Unknown]
  - Neurological symptom [Unknown]
  - Diarrhoea [Unknown]
  - Irritability [Unknown]
  - Neuroleptic malignant syndrome [Unknown]
